FAERS Safety Report 6732314-4 (Version None)
Quarter: 2010Q2

REPORT INFORMATION
  Report Type: 
  Country: None (occurrence: None)
  Receive Date: 20100519
  Receipt Date: 20100504
  Transmission Date: 20101027
  Serious: Yes (Death, Hospitalization, Other)
  Sender: FDA-Public Use
  Company Number: US-TYCO HEALTHCARE/MALLINCKRODT-T201001153

PATIENT
  Sex: Male
  Weight: 67.982 kg

DRUGS (18)
  1. EXALGO EXTENDED RELEASE [Suspect]
     Indication: PAIN
     Dosage: 32 MG, QD
     Route: 048
     Dates: start: 20091213, end: 20091229
  2. PREDNISONE [Suspect]
     Indication: PROSTATE CANCER
     Dosage: 5 MG, BID
     Route: 048
     Dates: start: 20091217, end: 20100111
  3. PALLADON                           /00080902/ [Suspect]
     Indication: PAIN
     Dosage: 26 ?G, QID
     Route: 048
     Dates: start: 20091125, end: 20091229
  4. SUNITINIB MALATE (SU-011, 248) [Suspect]
     Indication: PROSTATE CANCER
     Dosage: 37.5 MG, QD
     Route: 048
     Dates: start: 20091217, end: 20100107
  5. PLACEBO [Suspect]
     Indication: PROSTATE CANCER
     Dosage: 3705 MG, QD
     Route: 048
     Dates: start: 20091217, end: 20100107
  6. LACTULOSE [Concomitant]
     Dosage: UNK
     Dates: start: 20100103
  7. HALDOL [Concomitant]
     Indication: NAUSEA
     Dosage: UNK
     Dates: start: 20091125, end: 20091229
  8. MOVICOL                            /01053601/ [Concomitant]
     Indication: CONSTIPATION
     Dosage: UNK
     Dates: start: 20091125
  9. METAMIZOLE [Concomitant]
     Indication: PAIN
     Dosage: UNK
     Dates: start: 20091125, end: 20091229
  10. LYRICA [Concomitant]
     Indication: PAIN
     Dosage: UNK
     Dates: start: 20091125, end: 20091229
  11. OMEPRAZOLE [Concomitant]
     Indication: GASTRITIS
     Dosage: UNK
     Dates: start: 20091125
  12. PAROXETINE [Concomitant]
     Indication: DEPRESSION
     Dosage: UNK
     Dates: start: 20091125, end: 20091229
  13. METOCLOPRAMIDE HYDROCHLORIDE [Concomitant]
     Indication: NAUSEA
     Dosage: UNK
     Dates: start: 20091217
  14. KEVATRIL [Concomitant]
     Indication: NAUSEA
     Dosage: UNK
     Dates: start: 20091217, end: 20091229
  15. TAVOR                              /00273201/ [Concomitant]
     Indication: INSOMNIA
     Dosage: UNK
     Dates: start: 20091213, end: 20091217
  16. FUROSEMID                          /00032601/ [Concomitant]
     Indication: OEDEMA
     Dosage: UNK
     Dates: start: 20091228, end: 20091229
  17. SCOPODERM                          /00008701/ [Concomitant]
     Indication: PAIN
     Dosage: UNK
     Dates: start: 20091229
  18. AUGMENTAN                          /00756801/ [Concomitant]
     Dosage: UNK
     Dates: start: 20100102

REACTIONS (6)
  - BLOOD CREATININE INCREASED [None]
  - DEHYDRATION [None]
  - DISEASE PROGRESSION [None]
  - HEPATOTOXICITY [None]
  - HYPONATRAEMIA [None]
  - NARCOTIC INTOXICATION [None]
